FAERS Safety Report 8598259-2 (Version None)
Quarter: 2012Q3

REPORT INFORMATION
  Report Type: 
  Country: None (occurrence: None)
  Receive Date: 20120816
  Receipt Date: 20120807
  Transmission Date: 20120928
  Serious: Yes (Hospitalization)
  Sender: FDA-Public Use
  Company Number: BE-ASTRAZENECA-2012SE42083

PATIENT
  Age: 78 Year
  Sex: Female
  Weight: 72.9 kg

DRUGS (12)
  1. VIMOVO [Suspect]
     Route: 048
  2. CLONAZEPAM [Concomitant]
     Indication: RESTLESS LEGS SYNDROME
  3. PRAXILENE [Concomitant]
  4. IBUPROFEN [Concomitant]
  5. REDOMEX [Concomitant]
  6. RISPERDAL [Concomitant]
  7. PERINDOPRIL ERBUMINE [Concomitant]
  8. VASEXTEN [Concomitant]
  9. LORMETAZEPAME [Suspect]
     Route: 065
  10. BISOPROLOL FUMARATE AND HYDROCHLOROTHIAZIDE [Concomitant]
  11. INDAPAMIDE [Concomitant]
  12. INDAPAMIDE [Concomitant]

REACTIONS (2)
  - HALLUCINATION, AUDITORY [None]
  - PAIN IN EXTREMITY [None]
